FAERS Safety Report 7229954-5 (Version None)
Quarter: 2011Q1

REPORT INFORMATION
  Report Type: 
  Country: None (occurrence: None)
  Receive Date: 20110117
  Receipt Date: 20110113
  Transmission Date: 20110831
  Serious: Yes (Hospitalization)
  Sender: FDA-Public Use
  Company Number: US-ELI_LILLY_AND_COMPANY-US201101003442

PATIENT
  Sex: Female

DRUGS (3)
  1. HUMULIN 70/30 [Suspect]
     Indication: DIABETES MELLITUS
     Dosage: 10 U, EACH MORNING
     Dates: start: 20101001
  2. ANTIHYPERTENSIVES [Concomitant]
  3. HUMULIN 70/30 [Suspect]
     Dosage: 30 U, EACH EVENING
     Dates: start: 20101001

REACTIONS (2)
  - BLOOD GLUCOSE INCREASED [None]
  - ASTHMA [None]
